FAERS Safety Report 4296165-5 (Version None)
Quarter: 2004Q1

REPORT INFORMATION
  Report Type: 
  Country: None (occurrence: None)
  Receive Date: 20040217
  Receipt Date: 20030905
  Transmission Date: 20041129
  Serious: No
  Sender: FDA-Public Use
  Company Number: US-GLAXOSMITHKLINE-A0424884A

PATIENT
  Age: 43 Year
  Sex: Female

DRUGS (6)
  1. LAMICTAL [Suspect]
     Indication: BIPOLAR DISORDER
     Dosage: 500MG PER DAY
     Route: 048
     Dates: start: 20010101
  2. NEURONTIN [Concomitant]
  3. EFFEXOR [Concomitant]
  4. XANAX [Concomitant]
  5. WELLBUTRIN [Suspect]
     Route: 048
  6. LAMICTAL [Suspect]
     Dosage: 500MG UNKNOWN
     Route: 048

REACTIONS (7)
  - ALOPECIA [None]
  - ANXIETY [None]
  - DELIRIUM [None]
  - DEPRESSION [None]
  - IRRITABILITY [None]
  - LIBIDO INCREASED [None]
  - SENSORY DISTURBANCE [None]
